FAERS Safety Report 16880494 (Version 1)
Quarter: 2019Q4

REPORT INFORMATION
  Report Type: Spontaneous
  Country: GB (occurrence: GB)
  Receive Date: 20191003
  Receipt Date: 20191003
  Transmission Date: 20200122
  Serious: Yes (Hospitalization)
  Sender: FDA-Public Use
  Company Number: GB-MYLANLABS-2019M1091305

PATIENT
  Age: 59 Year
  Sex: Female
  Weight: 52.5 kg

DRUGS (12)
  1. THEOPHYLLINE [Suspect]
     Active Substance: THEOPHYLLINE ANHYDROUS
     Indication: CHRONIC OBSTRUCTIVE PULMONARY DISEASE
     Dosage: 800 MILLIGRAM, QD
     Route: 048
     Dates: start: 20180501, end: 20190409
  2. TRELEGY ELLIPTA [Concomitant]
     Active Substance: FLUTICASONE FUROATE\UMECLIDINIUM BROMIDE\VILANTEROL TRIFENATATE
  3. PREDNISOLONE. [Concomitant]
     Active Substance: PREDNISOLONE
  4. BRIVARACETAM [Concomitant]
     Active Substance: BRIVARACETAM
  5. ALENDRONIC ACID [Concomitant]
     Active Substance: ALENDRONIC ACID
  6. ACCRETE D3 [Concomitant]
     Active Substance: CALCIUM CARBONATE\CHOLECALCIFEROL
  7. MONTELUKAST [Concomitant]
     Active Substance: MONTELUKAST SODIUM
  8. AMITRIPTYLINE [Concomitant]
     Active Substance: AMITRIPTYLINE
  9. BAMBUTEROL [Concomitant]
     Active Substance: BAMBUTEROL
     Dosage: STOPPED
  10. SALBUTAMOL [Concomitant]
     Active Substance: ALBUTEROL
  11. ALVERINE CITRATE [Concomitant]
     Active Substance: ALVERINE CITRATE
  12. NICOTINE. [Concomitant]
     Active Substance: NICOTINE
     Dosage: UNK

REACTIONS (12)
  - Tricuspid valve incompetence [Unknown]
  - Dyspnoea [Unknown]
  - Restlessness [Unknown]
  - Right ventricular dysfunction [Unknown]
  - Left ventricular dysfunction [Unknown]
  - Sinus tachycardia [Recovered/Resolved]
  - Agitation [Unknown]
  - Peripheral swelling [Unknown]
  - Toxicity to various agents [Unknown]
  - Mitral valve incompetence [Unknown]
  - Mydriasis [Unknown]
  - Cardiac failure chronic [Unknown]

NARRATIVE: CASE EVENT DATE: 20190402
